FAERS Safety Report 9981659 (Version 1)
Quarter: 2014Q1

REPORT INFORMATION
  Report Type: Report from Study
  Country: US (occurrence: US)
  Receive Date: 20140307
  Receipt Date: 20140307
  Transmission Date: 20141002
  Serious: No
  Sender: FDA-Public Use
  Company Number: US-ABBVIE-13P-163-1178384-00

PATIENT
  Age: 48 Year
  Sex: Female

DRUGS (8)
  1. HUMIRA [Suspect]
     Indication: CROHN^S DISEASE
     Dosage: INITIAL DOSE
     Dates: start: 20131207, end: 20131207
  2. HUMIRA [Suspect]
  3. LEXAPRO [Concomitant]
     Indication: ANXIETY
  4. LISINOPRIL [Concomitant]
     Indication: HYPERTENSION
  5. NEXIUM [Concomitant]
     Indication: GASTROOESOPHAGEAL REFLUX DISEASE
     Dosage: ALTERNATES WITH PRILOSEC EVERY SIX MONTHS OR SO
  6. PRILOSEC [Concomitant]
     Indication: GASTROOESOPHAGEAL REFLUX DISEASE
     Dosage: ALTERNATES WITH NEXIUM EVERY SIX MONTHS OR SO
  7. AMBIEN [Concomitant]
     Indication: INSOMNIA
     Dosage: ALTERNATES WITH AMBIEN CR
  8. AMBIEN CR [Concomitant]
     Indication: INSOMNIA
     Dosage: ALTERNATES WITH AMBIEN

REACTIONS (3)
  - Oropharyngeal pain [Not Recovered/Not Resolved]
  - Ear pain [Not Recovered/Not Resolved]
  - Respiratory tract congestion [Not Recovered/Not Resolved]
